FAERS Safety Report 4680775-7 (Version None)
Quarter: 2005Q2

REPORT INFORMATION
  Report Type: 
  Country: None (occurrence: None)
  Receive Date: 20050601
  Receipt Date: 20050519
  Transmission Date: 20051028
  Serious: Yes (Hospitalization, Other)
  Sender: FDA-Public Use
  Company Number: 2005065334

PATIENT
  Age: 35 Year
  Sex: Female

DRUGS (3)
  1. DIFLORASONE DIACETATE [Suspect]
     Indication: DERMATITIS ALLERGIC
     Dosage: 3 GRAM (1.5 GRAM, 2 IN 1 D), TRANSDERMAL
     Route: 062
     Dates: start: 20040928, end: 20041006
  2. PROPADERM (BECLOMETASONE DIPROPIONATE) [Suspect]
     Indication: DERMATITIS ALLERGIC
     Dosage: 1 GRAM (0.5 GRAM, 2 IN 1D), TRANSDERMAL
     Route: 062
     Dates: start: 20040914, end: 20040928
  3. CHLORHEXIDINE GLUCONATE [Concomitant]

REACTIONS (8)
  - ABSCESS [None]
  - DRUG EXPOSURE DURING PREGNANCY [None]
  - DRUG INEFFECTIVE [None]
  - IMPETIGO HERPETIFORMIS [None]
  - PIGMENTATION DISORDER [None]
  - PYREXIA [None]
  - RASH PUSTULAR [None]
  - SKIN DISCOLOURATION [None]
